FAERS Safety Report 23233022 (Version 1)
Quarter: 2023Q4

REPORT INFORMATION
  Report Type: Spontaneous
  Country: SI (occurrence: SI)
  Receive Date: 20231128
  Receipt Date: 20231128
  Transmission Date: 20240110
  Serious: Yes (Life-Threatening, Hospitalization, Other)
  Sender: FDA-Public Use
  Company Number: SI-BRISTOL-MYERS SQUIBB COMPANY-2023-170461

PATIENT
  Age: 62 Year
  Sex: Female

DRUGS (2)
  1. NIVOLUMAB [Suspect]
     Active Substance: NIVOLUMAB
     Indication: Lung adenocarcinoma
     Dosage: IPILIMUMAB
     Dates: start: 202308
  2. IPILIMUMAB [Suspect]
     Active Substance: IPILIMUMAB
     Indication: Lung adenocarcinoma
     Dates: start: 202308

REACTIONS (20)
  - Hyperthyroidism [Unknown]
  - Thyroiditis [Unknown]
  - Fatigue [Unknown]
  - Asthenia [Unknown]
  - Headache [Unknown]
  - Vomiting [Unknown]
  - Rash maculo-papular [Unknown]
  - Somnolence [Unknown]
  - Lethargy [Unknown]
  - Dyspnoea [Unknown]
  - Hypervolaemia [Unknown]
  - Cytokine release syndrome [Unknown]
  - Systemic inflammatory response syndrome [Unknown]
  - Septic shock [Unknown]
  - Tachycardia [Unknown]
  - Hypotension [Unknown]
  - Somnolence [Unknown]
  - Tachypnoea [Unknown]
  - Pyrexia [Unknown]
  - Hypovolaemia [Unknown]
